FAERS Safety Report 4630529-2 (Version None)
Quarter: 2005Q2

REPORT INFORMATION
  Report Type: 
  Country: None (occurrence: None)
  Receive Date: 20050408
  Receipt Date: 20050314
  Transmission Date: 20051028
  Serious: Yes (Hospitalization)
  Sender: FDA-Public Use
  Company Number: US-GLAXOSMITHKLINE-A0549724A

PATIENT
  Age: 68 Year
  Sex: Male
  Weight: 75.9 kg

DRUGS (9)
  1. ROSIGLITAZONE [Suspect]
     Dosage: 8MG PER DAY
     Route: 048
     Dates: start: 20010320
  2. METFORMIN HCL [Suspect]
     Dosage: 2G PER DAY
     Route: 048
     Dates: start: 20020917
  3. AMARYL [Suspect]
     Dosage: 8MG PER DAY
     Dates: start: 20041102
  4. NPH INSULIN [Suspect]
     Dosage: 25UD PER DAY
     Dates: start: 20041102, end: 20041126
  5. IRBESARTAN [Concomitant]
  6. DILTIAZEM [Concomitant]
  7. HYDROCHLOROTHIAZIDE [Concomitant]
  8. ASPIRIN [Concomitant]
  9. LOVASTATIN [Concomitant]

REACTIONS (2)
  - DEPRESSED LEVEL OF CONSCIOUSNESS [None]
  - HYPOGLYCAEMIA [None]
